FAERS Safety Report 25366749 (Version 1)
Quarter: 2025Q2

REPORT INFORMATION
  Report Type: Spontaneous
  Country: GB (occurrence: GB)
  Receive Date: 20250528
  Receipt Date: 20250528
  Transmission Date: 20250717
  Serious: Yes (Other)
  Sender: BAXTER
  Company Number: None

PATIENT
  Age: 60 Year
  Sex: Female
  Weight: 108 kg

DRUGS (4)
  1. SODIUM CHLORIDE [Suspect]
     Active Substance: SODIUM CHLORIDE
     Indication: Sedative therapy
     Route: 065
  2. BUPIVACAINE\FENTANYL [Suspect]
     Active Substance: BUPIVACAINE\FENTANYL
     Indication: Sedative therapy
     Route: 065
     Dates: start: 20250510
  3. MORPHINE SULFATE [Concomitant]
     Active Substance: MORPHINE SULFATE
     Indication: Fibromyalgia
     Route: 065
  4. MORPHINE SULFATE [Concomitant]
     Active Substance: MORPHINE SULFATE
     Indication: Arthritis

REACTIONS (13)
  - Chest discomfort [Recovered/Resolved]
  - Sleep attacks [Unknown]
  - Dyskinesia [Recovered/Resolved]
  - Hypertension [Recovered/Resolved]
  - Chest pain [Unknown]
  - Somnolence [Unknown]
  - Hypopnoea [Recovered/Resolved]
  - Vomiting [Recovered/Resolved]
  - Hyperhidrosis [Recovered/Resolved]
  - Constipation [Unknown]
  - Feeling hot [Recovered/Resolved]
  - Defaecation disorder [Recovered/Resolved]
  - Feeling cold [Recovered/Resolved]

NARRATIVE: CASE EVENT DATE: 20250510
